FAERS Safety Report 21931638 (Version 1)
Quarter: 2023Q1

REPORT INFORMATION
  Report Type: Spontaneous
  Country: US (occurrence: None)
  Receive Date: 20230130
  Receipt Date: 20230130
  Transmission Date: 20230417
  Serious: Yes (unspecified)
  Sender: FDA-Public Use
  Company Number: None

PATIENT
  Age: 62 Year
  Sex: Female

DRUGS (1)
  1. TECLISTAMAB-CQYV [Suspect]
     Active Substance: TECLISTAMAB-CQYV
     Indication: Plasma cell myeloma
     Dates: start: 20221229

REACTIONS (4)
  - Ocular hyperaemia [None]
  - Visual impairment [None]
  - Iridocyclitis [None]
  - Hypopyon [None]

NARRATIVE: CASE EVENT DATE: 20230105
